FAERS Safety Report 10649738 (Version 3)
Quarter: 2015Q2

REPORT INFORMATION
  Report Type: Spontaneous
  Country: US (occurrence: US)
  Receive Date: 20141212
  Receipt Date: 20150409
  Transmission Date: 20150821
  Serious: Yes (Other)
  Sender: FDA-Public Use
  Company Number: US-BAYER-2014-180730

PATIENT
  Age: 28 Year
  Sex: Female
  Weight: 90.71 kg

DRUGS (3)
  1. IBUPROFEN. [Concomitant]
     Active Substance: IBUPROFEN
     Dosage: 600 MG, PRN
     Route: 048
  2. MIRENA [Suspect]
     Active Substance: LEVONORGESTREL
     Indication: MENORRHAGIA
  3. MIRENA [Suspect]
     Active Substance: LEVONORGESTREL
     Indication: CONTRACEPTION
     Dosage: 20 MCG/24HR, CONT
     Route: 015
     Dates: start: 2009

REACTIONS (10)
  - Genital haemorrhage [Not Recovered/Not Resolved]
  - Cervical dysplasia [None]
  - Device breakage [None]
  - Pelvic pain [Not Recovered/Not Resolved]
  - Complication of device removal [None]
  - Cervical dysplasia [None]
  - Embedded device [Not Recovered/Not Resolved]
  - Device difficult to use [None]
  - Device difficult to use [None]
  - Abdominal pain lower [Not Recovered/Not Resolved]

NARRATIVE: CASE EVENT DATE: 201401
